FAERS Safety Report 4688631-5 (Version None)
Quarter: 2005Q2

REPORT INFORMATION
  Report Type: 
  Country: None (occurrence: None)
  Receive Date: 20050613
  Receipt Date: 20050416
  Transmission Date: 20051028
  Serious: Yes (Other)
  Sender: FDA-Public Use
  Company Number: US-AMGEN-KDL133931

PATIENT
  Sex: Female

DRUGS (2)
  1. ENBREL [Suspect]
     Indication: RHEUMATOID ARTHRITIS
     Route: 058
     Dates: start: 20040520, end: 20050406
  2. ESTROGEN NOS [Concomitant]
     Route: 062

REACTIONS (4)
  - BLINDNESS [None]
  - BLINDNESS TRANSIENT [None]
  - PAPILLOEDEMA [None]
  - VISION BLURRED [None]
